FAERS Safety Report 8563996-2 (Version None)
Quarter: 2012Q3

REPORT INFORMATION
  Report Type: 
  Country: None (occurrence: None)
  Receive Date: 20120803
  Receipt Date: 20120731
  Transmission Date: 20120928
  Serious: Yes (Disabling)
  Sender: FDA-Public Use
  Company Number: PHHY2012FR066476

PATIENT
  Sex: Female

DRUGS (6)
  1. SULPIRIDE [Concomitant]
     Dosage: UNK UKN, UNK
     Route: 048
  2. ZOMETA [Suspect]
     Dosage: UNK UKN, UNK
     Route: 042
     Dates: start: 20080901, end: 20120601
  3. FEMARA [Concomitant]
     Indication: BREAST CANCER
     Dosage: UNK UKN, UNK
     Route: 048
  4. DIVARIUS [Concomitant]
     Indication: DEPRESSION
     Dosage: UNK UKN, UNK
     Route: 048
  5. MORPHINE SULFATE [Concomitant]
     Indication: PAIN
     Dosage: UNK UKN, UNK
     Route: 048
  6. OMEPRAZOLE [Concomitant]
     Indication: PROPHYLAXIS
     Dosage: UNK UKN, UNK
     Route: 048

REACTIONS (2)
  - OSTEONECROSIS OF JAW [None]
  - EXPOSED BONE IN JAW [None]
